FAERS Safety Report 5268799-2 (Version None)
Quarter: 2007Q1

REPORT INFORMATION
  Report Type: 
  Country: None (occurrence: None)
  Receive Date: 20070315
  Receipt Date: 20070315
  Transmission Date: 20070707
  Serious: Yes (Life-Threatening, Hospitalization)
  Sender: FDA-Public Use
  Company Number: None

PATIENT
  Age: 81 Year
  Sex: Male
  Weight: 71.5 kg

DRUGS (8)
  1. LINEZOLID [Suspect]
     Indication: CELLULITIS
     Dosage: 600 MG PO BID
     Route: 048
     Dates: start: 20070202, end: 20070309
  2. SIMVASTATIN [Concomitant]
  3. HYOSCYAMINE SULFATE [Concomitant]
  4. K-PHOS NEUTRAL TAB [Concomitant]
  5. CLOPIDOGREL BISULFATE [Concomitant]
  6. ATENOLOL [Concomitant]
  7. OMEPRAZOLE [Concomitant]
  8. ISOSORBIDE MONONITRATE [Concomitant]

REACTIONS (1)
  - ANAEMIA [None]
